FAERS Safety Report 7069559-2 (Version None)
Quarter: 2010Q4

REPORT INFORMATION
  Report Type: 
  Country: None (occurrence: None)
  Receive Date: 20101028
  Receipt Date: 20100203
  Transmission Date: 20110411
  Serious: No
  Sender: FDA-Public Use
  Company Number: US-WYE-H13436710

PATIENT
  Sex: Female

DRUGS (4)
  1. VENLAFAXINE HYDROCHLORIDE [Suspect]
     Indication: DEPRESSION
     Route: 048
     Dates: start: 20010101, end: 20080101
  2. VENLAFAXINE HYDROCHLORIDE [Suspect]
     Route: 048
     Dates: start: 20080101, end: 20100129
  3. VENLAFAXINE HYDROCHLORIDE [Suspect]
     Dosage: UNKNOWN
  4. XANAX [Concomitant]

REACTIONS (3)
  - DEPRESSION [None]
  - DRUG WITHDRAWAL SYNDROME [None]
  - MEDICATION RESIDUE [None]
